FAERS Safety Report 4446252-3 (Version None)
Quarter: 2004Q3

REPORT INFORMATION
  Report Type: 
  Country: None (occurrence: None)
  Receive Date: 20040902
  Receipt Date: 20040520
  Transmission Date: 20050211
  Serious: Yes (Other)
  Sender: FDA-Public Use
  Company Number: 16855

PATIENT
  Age: 36 Year
  Sex: Male

DRUGS (5)
  1. ALDARA [Suspect]
     Dosage: 3 IN 1 WEEK(S)
     Route: 061
     Dates: start: 20000523, end: 20000811
  2. LISINOPRIL [Suspect]
     Route: 048
     Dates: start: 20000228
  3. CYCLOSPORINE [Concomitant]
  4. PREDNISOLONE [Concomitant]
  5. AZATHIOPRINE [Concomitant]

REACTIONS (5)
  - BLOOD CREATININE INCREASED [None]
  - BLOOD UREA INCREASED [None]
  - KIDNEY TRANSPLANT REJECTION [None]
  - RENAL TUBULAR DISORDER [None]
  - SKIN PAPILLOMA [None]
